FAERS Safety Report 8461883-1 (Version None)
Quarter: 2012Q2

REPORT INFORMATION
  Report Type: 
  Country: None (occurrence: None)
  Receive Date: 20120625
  Receipt Date: 20120618
  Transmission Date: 20120825
  Serious: Yes (Life-Threatening, Hospitalization)
  Sender: FDA-Public Use
  Company Number: GB-ASTELLAS-2012US005631

PATIENT
  Sex: Male
  Weight: 71 kg

DRUGS (1)
  1. ERLOTINIB HYDROCHLORIDE [Suspect]
     Indication: LUNG NEOPLASM MALIGNANT
     Dosage: 150 MG, UID/QD
     Route: 048
     Dates: start: 20120615, end: 20120601

REACTIONS (3)
  - PULMONARY TOXICITY [None]
  - INFECTION [None]
  - DIFFUSE ALVEOLAR DAMAGE [None]
